FAERS Safety Report 4493200-6 (Version None)
Quarter: 2004Q4

REPORT INFORMATION
  Report Type: 
  Country: None (occurrence: None)
  Receive Date: 20041029
  Receipt Date: 20041015
  Transmission Date: 20050328
  Serious: Yes (Other)
  Sender: FDA-Public Use
  Company Number: K200401629

PATIENT
  Age: 53 Year
  Sex: Female

DRUGS (5)
  1. LEVOXYL [Suspect]
     Indication: HYPOTHYROIDISM
     Dosage: 100 MCG, QD, ORAL
     Route: 048
     Dates: start: 20040301, end: 20041013
  2. LEVOXYL [Suspect]
     Indication: HYPOTHYROIDISM
     Dosage: 100 MCG, QD, ORAL
     Route: 048
     Dates: start: 20041016
  3. ALLEGRA [Concomitant]
  4. NASONEX [Concomitant]
  5. ESTRADIOL [Concomitant]

REACTIONS (5)
  - ANXIETY [None]
  - CHEST DISCOMFORT [None]
  - LOCAL SWELLING [None]
  - MUSCLE TIGHTNESS [None]
  - OROPHARYNGEAL SWELLING [None]
